FAERS Safety Report 15157396 (Version 1)
Quarter: 2018Q3

REPORT INFORMATION
  Report Type: Report from Study
  Country: CO (occurrence: CO)
  Receive Date: 20180718
  Receipt Date: 20180718
  Transmission Date: 20181010
  Serious: Yes (Hospitalization)
  Sender: FDA-Public Use
  Company Number: CO-ACTELION-A-CH2018-172639

PATIENT
  Age: 54 Year
  Sex: Female
  Weight: 57 kg

DRUGS (2)
  1. TRACLEER [Suspect]
     Active Substance: BOSENTAN
     Indication: PULMONARY ARTERIAL HYPERTENSION
     Dosage: 125 MG, BID
     Route: 048
     Dates: start: 20050315
  2. INFLUENZA VACCINE [Concomitant]
     Active Substance: INFLUENZA VIRUS VACCINE
     Dosage: UNK, SINGLE
     Dates: start: 20180601, end: 20180601

REACTIONS (9)
  - Influenza like illness [Unknown]
  - Nasal congestion [Unknown]
  - Pyrexia [Unknown]
  - Pulmonary pain [Not Recovered/Not Resolved]
  - Productive cough [Unknown]
  - Haemoptysis [Unknown]
  - Weight fluctuation [Not Recovered/Not Resolved]
  - Oropharyngeal pain [Unknown]
  - Pulmonary congestion [Unknown]

NARRATIVE: CASE EVENT DATE: 20180504
